FAERS Safety Report 8795630 (Version 2)
Quarter: 2012Q4

REPORT INFORMATION
  Report Type: Report from Study
  Country: US (occurrence: US)
  Receive Date: 20120919
  Receipt Date: 20121115
  Transmission Date: 20130627
  Serious: Yes (Hospitalization, Other)
  Sender: FDA-Public Use
  Company Number: US-PURDUE-USA-2012-0092902

PATIENT
  Age: 42 Year
  Sex: Female

DRUGS (4)
  1. OXYCONTIN (NDA 22-272) [Suspect]
     Indication: BACK PAIN
     Dosage: 40 mg, bid
     Route: 048
  2. OXYCONTIN (NDA 22-272) [Suspect]
     Dosage: 80 mg, tid
     Route: 048
  3. NEURONTIN [Concomitant]
     Indication: BACK PAIN
     Dosage: 600 mg, UNK
     Route: 048
  4. ZYRTEC [Concomitant]
     Indication: HYPERSENSITIVITY
     Dosage: 1 tablet, daily as needed
     Route: 048

REACTIONS (3)
  - Accidental exposure to product [Recovered/Resolved]
  - Renal failure acute [Unknown]
  - Lethargy [Unknown]
